FAERS Safety Report 8098313-8 (Version None)
Quarter: 2012Q1

REPORT INFORMATION
  Report Type: 
  Country: None (occurrence: None)
  Receive Date: 20120129
  Receipt Date: 20110929
  Transmission Date: 20120608
  Serious: Yes (Other)
  Sender: FDA-Public Use
  Company Number: US-ABBOTT-11P-163-0860206-00

PATIENT
  Sex: Female
  Weight: 79.45 kg

DRUGS (7)
  1. UNKNOWN EYE DROPS [Concomitant]
     Indication: GLAUCOMA
  2. HUMIRA [Suspect]
     Indication: RHEUMATOID ARTHRITIS
     Route: 058
     Dates: start: 20040101
  3. METHOTREXATE [Concomitant]
     Indication: RHEUMATOID ARTHRITIS
     Dosage: TEN 2.5MG TABLETS WEEKLY
  4. ASPIRIN [Concomitant]
     Indication: CARDIAC DISORDER
  5. UNKNOWN STATIN [Concomitant]
     Indication: BLOOD CHOLESTEROL INCREASED
  6. UNKNOWN MEDICATIONS [Concomitant]
     Indication: HYPERTENSION
  7. XALATAN [Concomitant]
     Indication: GLAUCOMA

REACTIONS (4)
  - CATARACT [None]
  - CARDIAC PACEMAKER INSERTION [None]
  - JOINT SWELLING [None]
  - ARTHRALGIA [None]
